FAERS Safety Report 6791389-7 (Version None)
Quarter: 2010Q2

REPORT INFORMATION
  Report Type: 
  Country: None (occurrence: None)
  Receive Date: 20100624
  Receipt Date: 20100315
  Transmission Date: 20101027
  Serious: No
  Sender: FDA-Public Use
  Company Number: US-BAUSCH-2010BL001435

PATIENT
  Age: 61 Year
  Sex: Female

DRUGS (5)
  1. BESIVANCE [Suspect]
     Indication: EYE INFECTION
     Route: 047
     Dates: start: 20100225, end: 20100228
  2. BESIVANCE [Suspect]
     Route: 047
     Dates: start: 20100225, end: 20100228
  3. BESIVANCE [Suspect]
     Route: 047
     Dates: start: 20100301, end: 20100304
  4. BESIVANCE [Suspect]
     Route: 047
     Dates: start: 20100301, end: 20100304
  5. PEPCID [Concomitant]
     Indication: GASTROOESOPHAGEAL REFLUX DISEASE

REACTIONS (7)
  - ABDOMINAL DISCOMFORT [None]
  - ABNORMAL FAECES [None]
  - ASTHENIA [None]
  - BACK PAIN [None]
  - DIZZINESS [None]
  - FAECES DISCOLOURED [None]
  - NAUSEA [None]
